FAERS Safety Report 25939971 (Version 1)
Quarter: 2025Q4

REPORT INFORMATION
  Report Type: Report from Study
  Country: EU (occurrence: EU)
  Receive Date: 20251020
  Receipt Date: 20251020
  Transmission Date: 20260117
  Serious: Yes (Other)
  Sender: ROCHE
  Company Number: EU-ROCHE-10000411877

PATIENT

DRUGS (2)
  1. OBINUTUZUMAB [Suspect]
     Active Substance: OBINUTUZUMAB
     Indication: Chronic lymphocytic leukaemia
     Route: 065
  2. ACALABRUTINIB [Suspect]
     Active Substance: ACALABRUTINIB
     Indication: Chronic lymphocytic leukaemia
     Route: 065

REACTIONS (31)
  - Neutropenia [Unknown]
  - Haematotoxicity [Unknown]
  - Coronavirus infection [Unknown]
  - Brain abscess [Unknown]
  - Septic shock [Unknown]
  - Angina pectoris [Unknown]
  - Myocardial infarction [Unknown]
  - Diplopia [Unknown]
  - Diarrhoea [Unknown]
  - Post procedural haematoma [Unknown]
  - Hyponatraemia [Unknown]
  - Lung adenocarcinoma [Unknown]
  - Acute respiratory failure [Unknown]
  - Anaemia [Unknown]
  - Thrombocytopenia [Unknown]
  - Splenic haematoma [Unknown]
  - Actinomycosis [Unknown]
  - Beta haemolytic streptococcal infection [Unknown]
  - Citrobacter infection [Unknown]
  - Headache [Unknown]
  - Haemorrhage [Unknown]
  - Haematoma [Unknown]
  - Atrial fibrillation [Unknown]
  - Tachyarrhythmia [Unknown]
  - Asthenia [Unknown]
  - Ecchymosis [Unknown]
  - Eczema [Unknown]
  - Rash maculo-papular [Unknown]
  - Gastrointestinal disorder [Unknown]
  - Eye contusion [Unknown]
  - Back pain [Unknown]
